FAERS Safety Report 15761584 (Version 1)
Quarter: 2018Q4

REPORT INFORMATION
  Report Type: Spontaneous
  Country: US (occurrence: US)
  Receive Date: 20181207
  Receipt Date: 20181207
  Transmission Date: 20190205
  Serious: Yes (Other)
  Sender: FDA-Public Use
  Company Number: None

PATIENT
  Age: 22 Year
  Sex: Female
  Weight: 60.75 kg

DRUGS (1)
  1. CETAPHIL [Suspect]
     Active Substance: AVOBENZONE\OCTOCRYLENE\TRICLOSAN
     Dates: start: 20181203, end: 20181206

REACTIONS (7)
  - Swollen tongue [None]
  - Dysphagia [None]
  - Dyspnoea [None]
  - Skin irritation [None]
  - Pruritus [None]
  - Urticaria [None]
  - Aphasia [None]

NARRATIVE: CASE EVENT DATE: 20181206
